FAERS Safety Report 16876956 (Version 1)
Quarter: 2019Q4

REPORT INFORMATION
  Report Type: Spontaneous
  Country: GB (occurrence: GB)
  Receive Date: 20191002
  Receipt Date: 20191002
  Transmission Date: 20200122
  Serious: Yes (Other)
  Sender: FDA-Public Use
  Company Number: GB-PFIZER INC-2019416207

PATIENT
  Age: 19 Year
  Sex: Female
  Weight: 81.18 kg

DRUGS (1)
  1. SAYANA PRESS [Suspect]
     Active Substance: MEDROXYPROGESTERONE\MEDROXYPROGESTERONE ACETATE
     Dosage: 104 MG/ 0.65 ML EVERY 13 WEEKS
     Route: 058
     Dates: start: 20180521, end: 20190722

REACTIONS (2)
  - Injection site mass [Not Recovered/Not Resolved]
  - Injection site scar [Unknown]
